FAERS Safety Report 6253007 (Version 3)
Quarter: 2013Q3

REPORT INFORMATION
  Report Type: Spontaneous
  Country: JP (occurrence: JP)
  Receive Date: 20070305
  Receipt Date: 20130812
  Transmission Date: 20140515
  Serious: Yes (Death, Hospitalization, Other)
  Sender: FDA-Public Use
  Company Number: JP-ELI_LILLY_AND_COMPANY-US_011178209

PATIENT
  Age: 29 Year
  Sex: Male
  Weight: 90 kg

DRUGS (8)
  1. ZYPREXA [Suspect]
     Indication: SCHIZOPHRENIA
     Dosage: 15 MG, DAILY (1/D)
     Route: 048
     Dates: start: 20011010, end: 200111
  2. TIMIPERONE [Concomitant]
     Indication: SCHIZOPHRENIA
     Dosage: 6 MG, DAILY (1/D)
     Route: 048
     Dates: start: 199903, end: 200111
  3. BIPERIDEN [Concomitant]
     Indication: PARKINSONISM
     Dosage: 2 MG, DAILY (1/D)
     Route: 048
     Dates: start: 199903, end: 200111
  4. SEPAZON [Concomitant]
     Indication: ANXIETY
     Dosage: 2 MG, DAILY (1/D)
     Route: 048
     Dates: start: 199903, end: 200111
  5. LIPANTIL [Concomitant]
     Indication: HYPERLIPIDAEMIA
     Dosage: 300 MG, DAILY (1/D)
     Route: 048
     Dates: start: 20010718, end: 200111
  6. SEROQUEL [Concomitant]
     Indication: SCHIZOPHRENIA
     Dosage: UNK, UNKNOWN
     Dates: start: 20010620, end: 20011106
  7. SERENACE [Concomitant]
     Dosage: UNK, UNKNOWN
  8. IMPROMEN [Concomitant]
     Dosage: UNK, UNKNOWN

REACTIONS (6)
  - Diabetic hyperosmolar coma [Fatal]
  - Cardio-respiratory arrest [Recovering/Resolving]
  - Liver injury [Not Recovered/Not Resolved]
  - Hyperglycaemia [Not Recovered/Not Resolved]
  - Hyperlipidaemia [Not Recovered/Not Resolved]
  - Increased appetite [Unknown]
